FAERS Safety Report 19599232 (Version 1)
Quarter: 2021Q3

REPORT INFORMATION
  Report Type: Spontaneous
  Country: US (occurrence: US)
  Receive Date: 20210723
  Receipt Date: 20210723
  Transmission Date: 20211014
  Serious: Yes (Other)
  Sender: FDA-Public Use
  Company Number: None

PATIENT
  Age: 58 Year
  Sex: Female
  Weight: 99 kg

DRUGS (1)
  1. GEMCITABINE. [Suspect]
     Active Substance: GEMCITABINE
     Indication: OVARIAN CANCER METASTATIC
     Dosage: ?          OTHER FREQUENCY:MULTIPLE;?
     Dates: start: 20201231, end: 20210618

REACTIONS (3)
  - Proteinuria [None]
  - Renal impairment [None]
  - Thrombotic microangiopathy [None]

NARRATIVE: CASE EVENT DATE: 20210716
